FAERS Safety Report 10207099 (Version 1)
Quarter: 2014Q2

REPORT INFORMATION
  Report Type: Spontaneous
  Country: US (occurrence: None)
  Receive Date: 20140527
  Receipt Date: 20140527
  Transmission Date: 20141212
  Serious: Yes (Hospitalization)
  Sender: FDA-Public Use
  Company Number: None

PATIENT
  Age: 81 Year
  Sex: Male

DRUGS (8)
  1. DABIGATRAN [Suspect]
     Indication: ATRIAL FIBRILLATION
     Route: 048
     Dates: start: 20120716
  2. HYDROCHLOROTHIAZIDE [Concomitant]
  3. SOTALOL [Concomitant]
  4. DILTIAZEM [Concomitant]
  5. DOXAZOSIN [Concomitant]
  6. ATORVASTATIN [Concomitant]
  7. ASPIRIN [Concomitant]
  8. IBUPROFEN [Concomitant]

REACTIONS (3)
  - Melaena [None]
  - Haemoglobin decreased [None]
  - Small intestinal haemorrhage [None]
